FAERS Safety Report 15823433 (Version 2)
Quarter: 2019Q1

REPORT INFORMATION
  Report Type: Spontaneous
  Country: US (occurrence: US)
  Receive Date: 20190114
  Receipt Date: 20190330
  Transmission Date: 20190417
  Serious: No
  Sender: FDA-Public Use
  Company Number: PHHY2019US007385

PATIENT
  Age: 26 Year
  Sex: Female

DRUGS (1)
  1. GENTEAL PF LUBRICANT EYE DROPS [Suspect]
     Active Substance: HYPROMELLOSE 2910 (4000 MPA.S)
     Indication: PRODUCT USED FOR UNKNOWN INDICATION
     Route: 047

REACTIONS (3)
  - Lacrimation increased [Recovered/Resolved]
  - Eye pain [Recovered/Resolved]
  - Product quality issue [Unknown]
